FAERS Safety Report 17521794 (Version 1)
Quarter: 2020Q1

REPORT INFORMATION
  Report Type: Spontaneous
  Country: GB (occurrence: GB)
  Receive Date: 20200310
  Receipt Date: 20200310
  Transmission Date: 20200409
  Serious: Yes (Death, Hospitalization, Other)
  Sender: FDA-Public Use
  Company Number: GB-SA-2020SA058800

PATIENT
  Age: 78 Year
  Sex: Male

DRUGS (12)
  1. WARFARIN [Concomitant]
     Active Substance: WARFARIN
  2. DIGOXIN. [Concomitant]
     Active Substance: DIGOXIN
     Dosage: 125 UG, QD
  3. ALFACALCIDOL [Suspect]
     Active Substance: ALFACALCIDOL
     Indication: END STAGE RENAL DISEASE
     Dosage: 500 NG
     Route: 048
  4. ATORVASTATIN [Concomitant]
     Active Substance: ATORVASTATIN
     Dosage: 80 MG, QD
  5. OMEPRAZOLE. [Concomitant]
     Active Substance: OMEPRAZOLE
     Dosage: 20 MG, QD
  6. ASPIRIN [ACETYLSALICYLIC ACID] [Concomitant]
     Active Substance: ASPIRIN
     Dosage: 75 MG, QD
  7. LEUPRORELIN [Concomitant]
     Active Substance: LEUPROLIDE ACETATE
     Indication: PROSTATE CANCER
     Dosage: UNK
     Route: 058
     Dates: start: 201809
  8. BISOPROLOL [Concomitant]
     Active Substance: BISOPROLOL
     Dosage: 10 MG, QD
  9. DILTIAZEM HYDROCHLORIDE. [Concomitant]
     Active Substance: DILTIAZEM HYDROCHLORIDE
     Dosage: 120 MG, QD
  10. FUROSEMIDE. [Concomitant]
     Active Substance: FUROSEMIDE
  11. FORTISIP [Concomitant]
     Active Substance: CARBOHYDRATES\FATTY ACIDS\MINERALS\PROTEIN\VITAMINS
     Dosage: 2 DF, QD
  12. ENOXAPARIN SODIUM. [Suspect]
     Active Substance: ENOXAPARIN SODIUM
     Dosage: 20 MG, QD
     Route: 058
     Dates: start: 20190301

REACTIONS (2)
  - Calciphylaxis [Fatal]
  - Skin discolouration [Fatal]

NARRATIVE: CASE EVENT DATE: 20190701
